FAERS Safety Report 25125433 (Version 1)
Quarter: 2025Q1

REPORT INFORMATION
  Report Type: Spontaneous
  Country: US (occurrence: US)
  Receive Date: 20250326
  Receipt Date: 20250326
  Transmission Date: 20250409
  Serious: No
  Sender: BAYER HEALTHCARE LLC
  Company Number: US-BAYER-2025A039570

PATIENT
  Sex: Female

DRUGS (1)
  1. MIRALAX [Suspect]
     Active Substance: POLYETHYLENE GLYCOL 3350
     Indication: Diverticulum intestinal
     Route: 048

REACTIONS (3)
  - Diarrhoea [Recovered/Resolved]
  - Product prescribing issue [None]
  - Product use in unapproved indication [None]
